FAERS Safety Report 8851060 (Version 1)
Quarter: 2012Q4

REPORT INFORMATION
  Report Type: 
  Country: None (occurrence: US)
  Receive Date: 20121019
  Receipt Date: 20121019
  Transmission Date: 20130627
  Serious: No
  Sender: FDA-Public Use
  Company Number: US-TEVA-340005USA

PATIENT
  Sex: Male

DRUGS (4)
  1. NUVIGIL [Suspect]
     Route: 048
  2. STOOL SOFTENER [Suspect]
  3. LEVOTHROID [Concomitant]
  4. BABY ASPIRIN [Concomitant]

REACTIONS (1)
  - Off label use [Recovered/Resolved]
